FAERS Safety Report 10215273 (Version 2)
Quarter: 2014Q2

REPORT INFORMATION
  Report Type: Report from Study
  Country: IN (occurrence: IN)
  Receive Date: 20140603
  Receipt Date: 20140626
  Transmission Date: 20141212
  Serious: Yes (Death)
  Sender: FDA-Public Use
  Company Number: PHHY2014IN067361

PATIENT
  Age: 85 Year
  Sex: Female

DRUGS (4)
  1. ACLASTA [Suspect]
     Indication: OSTEOPOROSIS
     Dosage: UNK ONCE IN A YEAR
     Route: 042
  2. ACLASTA [Suspect]
     Dosage: UNK ONCE IN A YEAR
     Route: 042
  3. ACLASTA [Suspect]
     Dosage: UNK ONCE IN A YEAR
     Route: 042
  4. ACLASTA [Suspect]
     Dosage: UNK ONCE IN A YEAR
     Route: 042
     Dates: start: 20140114

REACTIONS (2)
  - Death [Fatal]
  - Osteoporosis [Unknown]
